FAERS Safety Report 15589128 (Version 1)
Quarter: 2018Q4

REPORT INFORMATION
  Report Type: Spontaneous
  Country: US (occurrence: US)
  Receive Date: 20181106
  Receipt Date: 20181106
  Transmission Date: 20190205
  Serious: No
  Sender: FDA-Public Use
  Company Number: US-CELGENEUS-USA-20181010190

PATIENT
  Age: 50 Year
  Sex: Female

DRUGS (2)
  1. OTEZLA [Suspect]
     Active Substance: APREMILAST
     Indication: PSORIASIS
     Dosage: 60 MILLIGRAM
     Route: 048
     Dates: start: 201810
  2. OTEZLA [Suspect]
     Active Substance: APREMILAST
     Indication: PSORIATIC ARTHROPATHY
     Dosage: STARTER PACK
     Route: 048
     Dates: start: 201810

REACTIONS (7)
  - Ligament rupture [Unknown]
  - Lethargy [Unknown]
  - Joint swelling [Unknown]
  - Nausea [Unknown]
  - Paraesthesia [Unknown]
  - Diarrhoea [Unknown]
  - Migraine [Unknown]

NARRATIVE: CASE EVENT DATE: 201810
